FAERS Safety Report 16332865 (Version 8)
Quarter: 2020Q3

REPORT INFORMATION
  Report Type: Spontaneous
  Country: US (occurrence: US)
  Receive Date: 20190520
  Receipt Date: 20200831
  Transmission Date: 20201102
  Serious: Yes (Hospitalization)
  Sender: FDA-Public Use
  Company Number: US-PFIZER INC-2019082583

PATIENT
  Age: 49 Year
  Sex: Female

DRUGS (2)
  1. LYRICA [Suspect]
     Active Substance: PREGABALIN
     Indication: MULTIPLE SCLEROSIS
     Dosage: 100 MG, 3X/DAY
     Route: 048
  2. PERCOCET [OXYCODONE HYDROCHLORIDE;OXYCODONE TEREPHTHALATE;PARACETAMOL] [Concomitant]
     Active Substance: ACETAMINOPHEN\OXYCODONE HYDROCHLORIDE\OXYCODONE TEREPHTHALATE
     Dosage: UNK, AS NEEDED (7.5/325 FOUR TIMES A DAY)

REACTIONS (7)
  - Product use in unapproved indication [Unknown]
  - Feeling abnormal [Unknown]
  - Gait disturbance [Unknown]
  - Off label use [Unknown]
  - Central nervous system lesion [Unknown]
  - Fibromyalgia [Unknown]
  - Impaired driving ability [Unknown]
